FAERS Safety Report 17527769 (Version 1)
Quarter: 2020Q1

REPORT INFORMATION
  Report Type: Spontaneous
  Country: US (occurrence: US)
  Receive Date: 20200311
  Receipt Date: 20200311
  Transmission Date: 20200409
  Serious: No
  Sender: FDA-Public Use
  Company Number: US-VERTEX PHARMACEUTICALS-2020-004549

PATIENT
  Sex: Male
  Weight: 68 kg

DRUGS (1)
  1. TRIKAFTA [Suspect]
     Active Substance: ELEXACAFTOR\IVACAFTOR\TEZACAFTOR
     Indication: CYSTIC FIBROSIS
     Dosage: 100 MG EXACAFTOR/50MG TEZACAFTOR75MG IVACAFTOR AND 150MG IVACAFTOR, FREQ UNK
     Route: 048
     Dates: start: 20200218

REACTIONS (4)
  - Pseudomonas test positive [Unknown]
  - Rhinorrhoea [Recovered/Resolved]
  - Testicular swelling [Recovered/Resolved]
  - Painful respiration [Recovering/Resolving]

NARRATIVE: CASE EVENT DATE: 2020
